FAERS Safety Report 7721343-X (Version None)
Quarter: 2011Q3

REPORT INFORMATION
  Report Type: 
  Country: None (occurrence: None)
  Receive Date: 20110831
  Receipt Date: 20110824
  Transmission Date: 20111222
  Serious: Yes (Death)
  Sender: FDA-Public Use
  Company Number: JP-BAYER-2011-026713

PATIENT
  Age: 77 Year
  Sex: Male
  Weight: 56 kg

DRUGS (10)
  1. FENTANYL [Concomitant]
     Indication: PAIN
     Dosage: DAILY DOSE 4.2 MG
     Route: 062
     Dates: start: 20100722, end: 20110302
  2. NEXAVAR [Suspect]
     Dosage: 200 MG, UNK
     Dates: start: 20100805, end: 20110301
  3. URSO 250 [Concomitant]
     Indication: CHRONIC HEPATITIS
     Dosage: DAILY DOSE 600 MG
     Route: 048
     Dates: start: 19980424, end: 20110302
  4. CANDESARTAN CILEXETIL [Concomitant]
     Indication: HYPERTENSION
     Dosage: DAILY DOSE 4 MG
     Route: 048
     Dates: start: 20040921, end: 20100302
  5. NEXAVAR [Suspect]
     Indication: HEPATIC NEOPLASM MALIGNANT
     Dosage: 200 MG, QD
     Route: 048
     Dates: start: 20100712, end: 20100718
  6. NEXAVAR [Suspect]
     Dosage: 400 MG, UNK
     Route: 048
     Dates: start: 20100719, end: 20100804
  7. CONIEL [Concomitant]
     Indication: HYPERTENSION
     Dosage: DAILY DOSE 8 MG
     Route: 048
     Dates: start: 20040921, end: 20110302
  8. GLYCYRON [Concomitant]
     Indication: CHRONIC HEPATITIS
     Dosage: DAILY DOSE 75 MG
     Route: 048
     Dates: start: 19980424, end: 20110302
  9. URINORM [Concomitant]
     Indication: HYPERURICAEMIA
     Dosage: DAILY DOSE 25 MG
     Route: 048
     Dates: start: 20040921, end: 20110302
  10. OXYCONTIN [Concomitant]
     Indication: PAIN
     Dosage: DAILY DOSE 40 MG
     Dates: start: 20110221, end: 20110302

REACTIONS (2)
  - INTERSTITIAL LUNG DISEASE [None]
  - HEPATIC FUNCTION ABNORMAL [None]
